FAERS Safety Report 15614230 (Version 6)
Quarter: 2019Q4

REPORT INFORMATION
  Report Type: Spontaneous
  Country: US (occurrence: US)
  Receive Date: 20181113
  Receipt Date: 20191023
  Transmission Date: 20200122
  Serious: No
  Sender: FDA-Public Use
  Company Number: US-PFIZER INC-2018463027

PATIENT
  Age: 47 Year
  Sex: Female
  Weight: 69.84 kg

DRUGS (2)
  1. IBRANCE [Suspect]
     Active Substance: PALBOCICLIB
     Indication: BREAST CANCER METASTATIC
     Dosage: 100 MG, CYCLIC (DAYS 1-21 Q28 DAYS)
     Route: 048
     Dates: start: 20181024
  2. IBRANCE [Suspect]
     Active Substance: PALBOCICLIB
     Dosage: 75 MG, CYCLIC (DAY 1-21 Q 28 DAYS)
     Route: 048
     Dates: start: 20181024

REACTIONS (10)
  - Condition aggravated [Recovered/Resolved]
  - White blood cell count decreased [Unknown]
  - Eyelid ptosis [Unknown]
  - Nausea [Recovered/Resolved]
  - Vomiting [Unknown]
  - Weight abnormal [Unknown]
  - Constipation [Recovered/Resolved]
  - Eye swelling [Unknown]
  - Menstrual disorder [Unknown]
  - Diarrhoea [Recovered/Resolved]

NARRATIVE: CASE EVENT DATE: 2018
